FAERS Safety Report 11700019 (Version 2)
Quarter: 2015Q4

REPORT INFORMATION
  Report Type: Spontaneous
  Country: US (occurrence: US)
  Receive Date: 20151105
  Receipt Date: 20151112
  Transmission Date: 20160304
  Serious: Yes (Death)
  Sender: FDA-Public Use
  Company Number: US-ROCHE-1656021

PATIENT
  Age: 51 Year
  Sex: Female
  Weight: 67.65 kg

DRUGS (1)
  1. ESBRIET [Suspect]
     Active Substance: PIRFENIDONE
     Indication: IDIOPATHIC PULMONARY FIBROSIS
     Dosage: 2403 MG DAILY PO, 3 CAPS PO TID
     Route: 048
     Dates: start: 20150618

REACTIONS (1)
  - Death [Fatal]

NARRATIVE: CASE EVENT DATE: 20150910
